FAERS Safety Report 16888725 (Version 2)
Quarter: 2019Q4

REPORT INFORMATION
  Report Type: Report from Study
  Country: None (occurrence: US)
  Receive Date: 20191007
  Receipt Date: 20191229
  Transmission Date: 20200122
  Serious: Yes (Other)
  Sender: FDA-Public Use
  Company Number: US-ABBVIE-19K-163-2947213-00

PATIENT
  Sex: Female
  Weight: 67.65 kg

DRUGS (1)
  1. HUMIRA [Suspect]
     Active Substance: ADALIMUMAB
     Indication: PSORIASIS
     Route: 058

REACTIONS (5)
  - Peripheral artery occlusion [Unknown]
  - Bursitis [Unknown]
  - Arthritis [Unknown]
  - Arthralgia [Unknown]
  - Peripheral swelling [Unknown]
